FAERS Safety Report 16081071 (Version 2)
Quarter: 2019Q1

REPORT INFORMATION
  Report Type: Spontaneous
  Country: AE (occurrence: AE)
  Receive Date: 20190316
  Receipt Date: 20190321
  Transmission Date: 20190418
  Serious: Yes (Hospitalization)
  Sender: FDA-Public Use
  Company Number: AE-B.I. PHARMACEUTICALS,INC./RIDGEFIELD-2019-BI-010764

PATIENT
  Age: 45 Year
  Sex: Male
  Weight: 87 kg

DRUGS (5)
  1. SYNJARDY [Suspect]
     Active Substance: EMPAGLIFLOZIN\METFORMIN HYDROCHLORIDE
     Indication: DIABETES MELLITUS MANAGEMENT
     Dosage: DOSE: 5/850 MG; DAILY DOSE: 10/1700
     Route: 065
     Dates: start: 20190114
  2. PIOGLITAZONE. [Concomitant]
     Active Substance: PIOGLITAZONE
     Indication: PRODUCT USED FOR UNKNOWN INDICATION
     Route: 065
     Dates: start: 2016
  3. JALRA M [Concomitant]
     Indication: TYPE 2 DIABETES MELLITUS
     Dosage: DOSE: 50/1000 MG; DAILY DOSE: 100/2000
     Route: 065
  4. ROSUVAST [Concomitant]
     Indication: DYSLIPIDAEMIA
     Route: 065
  5. METFORMIN [Concomitant]
     Active Substance: METFORMIN HYDROCHLORIDE
     Indication: PRODUCT USED FOR UNKNOWN INDICATION
     Route: 065
     Dates: start: 2016

REACTIONS (4)
  - Fatigue [Unknown]
  - Dizziness [Unknown]
  - Euglycaemic diabetic ketoacidosis [Recovered/Resolved]
  - Dehydration [Unknown]
